FAERS Safety Report 10523876 (Version 1)
Quarter: 2014Q4

REPORT INFORMATION
  Report Type: Spontaneous
  Country: None (occurrence: None)
  Receive Date: 20141015
  Receipt Date: 20141015
  Transmission Date: 20150528
  Serious: No
  Sender: FDA-Public Use
  Company Number: None

PATIENT
  Sex: Female

DRUGS (1)
  1. HUMIRA [Suspect]
     Active Substance: ADALIMUMAB
     Indication: CROHN^S DISEASE
     Dosage: 1 PEN, EVERY OTHER WEEK, SUBCUTANEOUS
     Route: 058

REACTIONS (5)
  - Pyrexia [None]
  - Nasal congestion [None]
  - Productive cough [None]
  - Haemoptysis [None]
  - Oropharyngeal pain [None]
